FAERS Safety Report 23102475 (Version 1)
Quarter: 2023Q4

REPORT INFORMATION
  Report Type: Spontaneous
  Country: US (occurrence: US)
  Receive Date: 20231025
  Receipt Date: 20231025
  Transmission Date: 20240110
  Serious: Yes (Hospitalization, Other)
  Sender: FDA-Public Use
  Company Number: US-GLAXOSMITHKLINE-US2023GSK143663

PATIENT

DRUGS (4)
  1. BUPROPION HYDROCHLORIDE XL [Suspect]
     Active Substance: BUPROPION HYDROCHLORIDE
     Indication: Product used for unknown indication
     Dosage: 150 MG
     Route: 048
  2. ESCITALOPRAM [Suspect]
     Active Substance: ESCITALOPRAM OXALATE
     Indication: Product used for unknown indication
     Dosage: 20 MG
     Route: 048
  3. LORAZEPAM [Suspect]
     Active Substance: LORAZEPAM
     Indication: Generalised tonic-clonic seizure
     Dosage: 0.5 MG
     Route: 048
  4. MIRTAZAPINE [Suspect]
     Active Substance: MIRTAZAPINE
     Indication: Product used for unknown indication
     Dosage: 15 MG
     Route: 048

REACTIONS (14)
  - Cardiogenic shock [Recovering/Resolving]
  - Overdose [Unknown]
  - Condition aggravated [Recovering/Resolving]
  - Sinus tachycardia [Recovering/Resolving]
  - Mental status changes [Recovering/Resolving]
  - Atrial fibrillation [Recovering/Resolving]
  - Generalised tonic-clonic seizure [Recovered/Resolved]
  - Leukocytosis [Unknown]
  - Hypotension [Recovering/Resolving]
  - Ventricular tachycardia [Recovering/Resolving]
  - Arrhythmic storm [Recovering/Resolving]
  - Ventricular hypokinesia [Recovering/Resolving]
  - Toxicity to various agents [Unknown]
  - Cardiac failure [Recovering/Resolving]
